FAERS Safety Report 9970299 (Version 1)
Quarter: 2014Q1

REPORT INFORMATION
  Report Type: Spontaneous
  Country: JP (occurrence: JP)
  Receive Date: 20140306
  Receipt Date: 20140306
  Transmission Date: 20141002
  Serious: Yes (Other)
  Sender: FDA-Public Use
  Company Number: JP-KOWA-2014S1000235

PATIENT
  Sex: Female

DRUGS (1)
  1. LIVALO [Suspect]
     Route: 048
     Dates: start: 20130123

REACTIONS (1)
  - Monoplegia [Recovered/Resolved]
